FAERS Safety Report 12264679 (Version 4)
Quarter: 2016Q3

REPORT INFORMATION
  Report Type: Spontaneous
  Country: BR (occurrence: BR)
  Receive Date: 20160413
  Receipt Date: 20160712
  Transmission Date: 20161109
  Serious: Yes (Other)
  Sender: FDA-Public Use
  Company Number: BR-PFIZER INC-2016202616

PATIENT
  Age: 38 Year
  Sex: Male
  Weight: 92 kg

DRUGS (6)
  1. CLONAZEPAM. [Concomitant]
     Active Substance: CLONAZEPAM
     Dosage: UNK
     Dates: start: 2011
  2. BIPERIDEN [Concomitant]
     Active Substance: BIPERIDEN
     Dosage: UNK
     Dates: start: 2011
  3. CLOZAPINE. [Concomitant]
     Active Substance: CLOZAPINE
     Dosage: UNK
     Dates: start: 2011
  4. FLUOXETINE [Concomitant]
     Active Substance: FLUOXETINE HYDROCHLORIDE
     Dosage: UNK
     Dates: start: 2011
  5. GEODON [Suspect]
     Active Substance: ZIPRASIDONE HYDROCHLORIDE\ZIPRASIDONE MESYLATE
     Indication: SCHIZOPHRENIA
     Dosage: UNK
     Route: 048
     Dates: start: 201508
  6. HALDOL [Concomitant]
     Active Substance: HALOPERIDOL
     Dosage: UNK
     Dates: start: 2011

REACTIONS (5)
  - Depressed mood [Unknown]
  - Suicidal behaviour [Unknown]
  - Hallucination, visual [Unknown]
  - Feeling of despair [Unknown]
  - Chills [Unknown]
